FAERS Safety Report 19660475 (Version 1)
Quarter: 2021Q3

REPORT INFORMATION
  Report Type: Spontaneous
  Country: US (occurrence: US)
  Receive Date: 20210804
  Receipt Date: 20210804
  Transmission Date: 20211014
  Serious: Yes (Life-Threatening)
  Sender: FDA-Public Use
  Company Number: None

PATIENT

DRUGS (1)
  1. NP THYROID [Suspect]
     Active Substance: LEVOTHYROXINE\LIOTHYRONINE
     Indication: HYPOTHYROIDISM
     Dosage: ?          QUANTITY:1 DF DOSAGE FORM;?
     Route: 048
     Dates: start: 20210512, end: 20210727

REACTIONS (19)
  - Apathy [None]
  - Anxiety [None]
  - Weight decreased [None]
  - Heart rate increased [None]
  - Insomnia [None]
  - Pain [None]
  - Hypertension [None]
  - Hyperhidrosis [None]
  - Feeling abnormal [None]
  - Asthenia [None]
  - Mood swings [None]
  - Arthralgia [None]
  - Fatigue [None]
  - Productive cough [None]
  - Muscular weakness [None]
  - Tremor [None]
  - Temperature intolerance [None]
  - Chest pain [None]
  - Alopecia [None]

NARRATIVE: CASE EVENT DATE: 20210706
